FAERS Safety Report 5654029-6 (Version None)
Quarter: 2008Q1

REPORT INFORMATION
  Report Type: 
  Country: None (occurrence: None)
  Receive Date: 20080306
  Receipt Date: 20071211
  Transmission Date: 20080703
  Serious: Yes (Other)
  Sender: FDA-Public Use
  Company Number: GB-PFIZER INC-2008019289

PATIENT
  Age: 79 Year
  Sex: Female

DRUGS (1)
  1. PREDNISOLONE [Suspect]
     Indication: HEADACHE

REACTIONS (4)
  - CONTUSION [None]
  - DEPRESSION [None]
  - DEPRESSION SUICIDAL [None]
  - MALAISE [None]
